FAERS Safety Report 9077474 (Version 1)
Quarter: 2013Q1

REPORT INFORMATION
  Report Type: Report from Study
  Country: US (occurrence: US)
  Receive Date: 20130130
  Receipt Date: 20130130
  Transmission Date: 20140127
  Serious: No
  Sender: FDA-Public Use
  Company Number: US-ABBOTT-12P-163-0961610-00

PATIENT
  Age: 45 None
  Sex: Female
  Weight: 145.28 kg

DRUGS (4)
  1. HUMIRA 40 MG/0.8 ML PEN [Suspect]
     Indication: PSORIASIS
     Dosage: ONCE
     Route: 058
     Dates: start: 20120607, end: 20120607
  2. HUMIRA 40 MG/0.8 ML PEN [Suspect]
     Dosage: ONCE
     Dates: start: 20120614, end: 20120614
  3. HUMIRA 40 MG/0.8 ML PEN [Suspect]
     Dates: end: 20120628
  4. HUMIRA 40 MG/0.8 ML PEN [Suspect]
     Dates: start: 20120724

REACTIONS (2)
  - Drug dose omission [Recovered/Resolved]
  - Psoriasis [Recovering/Resolving]
